FAERS Safety Report 5891629-2 (Version None)
Quarter: 2008Q3

REPORT INFORMATION
  Report Type: 
  Country: None (occurrence: None)
  Receive Date: 20080922
  Receipt Date: 20080917
  Transmission Date: 20090109
  Serious: Yes (Other)
  Sender: FDA-Public Use
  Company Number: US-ASTRAZENECA-2008UW19239

PATIENT
  Sex: Female

DRUGS (4)
  1. PRILOSEC [Suspect]
     Indication: GASTROINTESTINAL EROSION
     Route: 048
  2. MIACALCIN [Suspect]
     Indication: OSTEOPOROSIS
     Route: 045
     Dates: start: 20020101
  3. FORTEO [Suspect]
     Indication: OSTEOPOROSIS
  4. ACTOS [Concomitant]

REACTIONS (5)
  - DIARRHOEA [None]
  - DIZZINESS [None]
  - OSTEOPOROSIS [None]
  - PALPITATIONS [None]
  - WEIGHT DECREASED [None]
